FAERS Safety Report 21988935 (Version 1)
Quarter: 2023Q1

REPORT INFORMATION
  Report Type: Spontaneous
  Country: US (occurrence: US)
  Receive Date: 20230214
  Receipt Date: 20230214
  Transmission Date: 20230418
  Serious: Yes (Other)
  Sender: FDA-Public Use
  Company Number: US-STRIDES ARCOLAB LIMITED-2022SP007699

PATIENT
  Age: 79 Year
  Sex: Female

DRUGS (5)
  1. CARBOPLATIN [Suspect]
     Active Substance: CARBOPLATIN
     Indication: Lung squamous cell carcinoma stage IV
     Dosage: FIRST-LINE CHEMOTHERAPY; RECEIVED 6 CYCLES FOR 5 MONTHS WITH GEMCITABINE, AND THEN 2 CYCLES FOR 2 MO
     Route: 065
  2. CARBOPLATIN [Suspect]
     Active Substance: CARBOPLATIN
     Indication: Neuroendocrine carcinoma
     Dosage: UNK, 2 CYCLES, FOURTH-LINE CHEMOTHERAPY
     Route: 065
  3. ETOPOSIDE [Suspect]
     Active Substance: ETOPOSIDE
     Indication: Neuroendocrine carcinoma
     Dosage: UNK, CYCLICAL, FOURTH-LINE CHEMOTHERAPY
     Route: 065
  4. GEMCITABINE [Suspect]
     Active Substance: GEMCITABINE
     Indication: Lung squamous cell carcinoma stage IV
     Dosage: FIRST-LINE CHEMOTHERAPY; RECEIVED 6 CYCLES FOR 5 MONTHS WITH CARBOPLATIN
     Route: 065
  5. ERLOTINIB [Suspect]
     Active Substance: ERLOTINIB
     Indication: Lung squamous cell carcinoma stage IV
     Dosage: SECOND-LINE CHEMOTHERAPY
     Route: 065

REACTIONS (2)
  - Therapy non-responder [Unknown]
  - Off label use [Unknown]
